FAERS Safety Report 5450711-4 (Version None)
Quarter: 2007Q3

REPORT INFORMATION
  Report Type: 
  Country: None (occurrence: None)
  Receive Date: 20070910
  Receipt Date: 20070830
  Transmission Date: 20080115
  Serious: Yes (Death, Other)
  Sender: FDA-Public Use
  Company Number: 017923

PATIENT
  Sex: Female

DRUGS (4)
  1. MEDROXYPROGESTERONE [Suspect]
     Dates: start: 20001201, end: 20020801
  2. PREMARIN [Suspect]
     Dates: start: 20001201, end: 20020801
  3. PROMETRIUM [Suspect]
     Dates: start: 20001201, end: 20020801
  4. PREMPHASE (PREMARIN;CYCRIN 14/14) [Suspect]
     Dates: start: 20001201, end: 20020801

REACTIONS (1)
  - BREAST CANCER FEMALE [None]
